FAERS Safety Report 24177395 (Version 3)
Quarter: 2024Q3

REPORT INFORMATION
  Report Type: Spontaneous
  Country: US (occurrence: US)
  Receive Date: 20240806
  Receipt Date: 20240905
  Transmission Date: 20241017
  Serious: Yes (Disabling, Other)
  Sender: MERCK
  Company Number: US-009507513-2407USA015871

PATIENT

DRUGS (2)
  1. KEYTRUDA [Suspect]
     Active Substance: PEMBROLIZUMAB
     Indication: Renal cell carcinoma
     Dosage: 200 MILLIGRAM, EVERY 3 WEEKS (Q3W).
     Route: 042
     Dates: start: 202110, end: 202206
  2. KEYTRUDA [Suspect]
     Active Substance: PEMBROLIZUMAB
     Indication: Renal cancer recurrent

REACTIONS (6)
  - Blindness transient [Recovered/Resolved]
  - Gait inability [Recovered/Resolved]
  - Renal cancer recurrent [Unknown]
  - Von Hippel-Lindau disease [Unknown]
  - Multi-organ disorder [Recovered/Resolved]
  - Eye disorder [Recovered/Resolved]

NARRATIVE: CASE EVENT DATE: 20220601
